FAERS Safety Report 7055471-1 (Version None)
Quarter: 2010Q4

REPORT INFORMATION
  Report Type: 
  Country: None (occurrence: None)
  Receive Date: 20101021
  Receipt Date: 20101013
  Transmission Date: 20110411
  Serious: Yes (Hospitalization)
  Sender: FDA-Public Use
  Company Number: GB-SOLVAY-00309006532

PATIENT
  Age: 47 Year

DRUGS (2)
  1. TESTOGEL [Suspect]
     Indication: SECONDARY HYPOGONADISM
     Dosage: DAILY DOSE: 2 DOSAGE FORM
     Route: 062
     Dates: start: 20070801, end: 20090128
  2. TESTOGEL [Suspect]
     Dosage: DAILY DOSE: .5 DOSAGE FORM, 0.5 SACHET
     Route: 062

REACTIONS (2)
  - MYOCARDIAL INFARCTION [None]
  - POLYCYTHAEMIA [None]
